FAERS Safety Report 7930071-7 (Version None)
Quarter: 2011Q4

REPORT INFORMATION
  Report Type: 
  Country: None (occurrence: None)
  Receive Date: 20111121
  Receipt Date: 20111114
  Transmission Date: 20120403
  Serious: No
  Sender: FDA-Public Use
  Company Number: US-US-EMD SERONO, INC.-7094358

PATIENT
  Sex: Male

DRUGS (3)
  1. REBIF [Suspect]
     Indication: MULTIPLE SCLEROSIS
     Route: 058
     Dates: start: 20060912, end: 20111001
  2. OXYCODONE HCL [Concomitant]
  3. CELEBREX [Concomitant]

REACTIONS (4)
  - URTICARIA [None]
  - HEPATIC ENZYME INCREASED [None]
  - OSTEONECROSIS [None]
  - MULTIPLE SCLEROSIS RELAPSE [None]
